FAERS Safety Report 17044596 (Version 1)
Quarter: 2019Q4

REPORT INFORMATION
  Report Type: Spontaneous
  Country: US (occurrence: US)
  Receive Date: 20191118
  Receipt Date: 20191118
  Transmission Date: 20200122
  Serious: No
  Sender: FDA-Public Use
  Company Number: US-BAUSCH-BL-2019-059581

PATIENT
  Age: 48 Year
  Sex: Female

DRUGS (1)
  1. DUOBRII [Suspect]
     Active Substance: HALOBETASOL PROPIONATE\TAZAROTENE
     Indication: PRODUCT USED FOR UNKNOWN INDICATION
     Dosage: STRENGTH 0.01/0.045 PERCENT
     Route: 061

REACTIONS (3)
  - Accidental exposure to product [Unknown]
  - Genital erythema [Not Recovered/Not Resolved]
  - Skin exfoliation [Not Recovered/Not Resolved]
